FAERS Safety Report 9935312 (Version 1)
Quarter: 2014Q1

REPORT INFORMATION
  Report Type: Spontaneous
  Country: FR (occurrence: FR)
  Receive Date: 20140228
  Receipt Date: 20140228
  Transmission Date: 20141002
  Serious: Yes (Hospitalization, Other)
  Sender: FDA-Public Use
  Company Number: FR-PFIZER INC-2014056275

PATIENT
  Age: 38 Year
  Sex: Female

DRUGS (2)
  1. ZOLOFT [Suspect]
     Dosage: 1 DF, ONCE A DAY
     Route: 048
     Dates: start: 2011
  2. ABILIFY [Suspect]
     Dosage: 1 DF, ONCE A DAY
     Route: 048
     Dates: start: 2011

REACTIONS (1)
  - Ischaemic stroke [Unknown]
